FAERS Safety Report 25060059 (Version 1)
Quarter: 2025Q1

REPORT INFORMATION
  Report Type: Report from Study
  Country: FR (occurrence: FR)
  Receive Date: 20250310
  Receipt Date: 20250310
  Transmission Date: 20250409
  Serious: Yes (Hospitalization, Other)
  Sender: ABBVIE
  Company Number: FR-ABBVIE-6168648

PATIENT
  Age: 29 Year
  Sex: Female
  Weight: 52 kg

DRUGS (1)
  1. UPADACITINIB [Suspect]
     Active Substance: UPADACITINIB
     Indication: Crohn^s disease
     Route: 048
     Dates: start: 20240917, end: 20241126

REACTIONS (2)
  - Small intestinal obstruction [Recovered/Resolved with Sequelae]
  - Crohn^s disease [Recovered/Resolved with Sequelae]

NARRATIVE: CASE EVENT DATE: 20241126
